FAERS Safety Report 23087466 (Version 1)
Quarter: 2023Q4

REPORT INFORMATION
  Report Type: Spontaneous
  Country: US (occurrence: US)
  Receive Date: 20231020
  Receipt Date: 20231020
  Transmission Date: 20240110
  Serious: Yes (Death, Hospitalization, Disabling, Other)
  Sender: FDA-Public Use
  Company Number: US-SA-2018SA187809

PATIENT
  Age: 74 Year
  Sex: Male

DRUGS (15)
  1. PREDNISONE [Suspect]
     Active Substance: PREDNISONE
     Indication: Prostate cancer
     Dosage: 40 MG, QD
     Route: 065
  2. PREDNISONE [Suspect]
     Active Substance: PREDNISONE
     Indication: Metastases to liver
  3. PREDNISONE [Suspect]
     Active Substance: PREDNISONE
     Indication: Metastases to spleen
  4. OXALIPLATIN [Suspect]
     Active Substance: OXALIPLATIN
  5. GEMCITABINE HYDROCHLORIDE [Suspect]
     Active Substance: GEMCITABINE HYDROCHLORIDE
     Indication: Neoplasm malignant
     Route: 065
  6. GEMCITABINE HYDROCHLORIDE [Suspect]
     Active Substance: GEMCITABINE HYDROCHLORIDE
     Indication: Metastases to liver
  7. GEMCITABINE HYDROCHLORIDE [Suspect]
     Active Substance: GEMCITABINE HYDROCHLORIDE
     Indication: Metastases to spleen
  8. ETOPOSIDE [Suspect]
     Active Substance: ETOPOSIDE
     Indication: Prostate cancer
     Route: 065
  9. VINCRISTINE SULFATE [Suspect]
     Active Substance: VINCRISTINE SULFATE
     Indication: Prostate cancer
     Route: 065
  10. CYCLOPHOSPHAMIDE [Suspect]
     Active Substance: CYCLOPHOSPHAMIDE
     Indication: Prostate cancer
     Route: 065
  11. DOXORUBICIN [Suspect]
     Active Substance: DOXORUBICIN
     Indication: Prostate cancer
     Route: 065
  12. METHOTREXATE [Suspect]
     Active Substance: METHOTREXATE
     Indication: Prostate cancer
     Route: 037
  13. RITUXIMAB [Suspect]
     Active Substance: RITUXIMAB
     Indication: Metastases to liver
     Route: 065
  14. RITUXIMAB [Suspect]
     Active Substance: RITUXIMAB
     Indication: Prostate cancer
  15. RITUXIMAB [Suspect]
     Active Substance: RITUXIMAB
     Indication: Metastases to spleen

REACTIONS (6)
  - Malignant neoplasm progression [Fatal]
  - Hypercalcaemia [Fatal]
  - Mental status changes [Fatal]
  - Disability [Fatal]
  - Drug ineffective [Fatal]
  - Muscular weakness [Unknown]
